FAERS Safety Report 25151354 (Version 1)
Quarter: 2025Q2

REPORT INFORMATION
  Report Type: Report from Study
  Country: FR (occurrence: FR)
  Receive Date: 20250402
  Receipt Date: 20250402
  Transmission Date: 20250716
  Serious: No
  Sender: SANDOZ
  Company Number: FR-SANDOZ-SDZ2025FR020237

PATIENT
  Age: 8 Year
  Sex: Female

DRUGS (1)
  1. OMNITROPE [Suspect]
     Active Substance: SOMATROPIN
     Indication: Product used for unknown indication
     Dosage: 0.9 MG, QD (0.9MG PER DAY 7/7D )
     Route: 058
     Dates: start: 20250319

REACTIONS (2)
  - Injection site bruising [Unknown]
  - Wrong technique in device usage process [Unknown]
